FAERS Safety Report 16523466 (Version 1)
Quarter: 2019Q3

REPORT INFORMATION
  Report Type: Other
  Country: GB (occurrence: GB)
  Receive Date: 20190703
  Receipt Date: 20190703
  Transmission Date: 20191004
  Serious: Yes (Hospitalization, Other)
  Sender: FDA-Public Use
  Company Number: GB-LUPIN PHARMACEUTICALS INC.-2018-08495

PATIENT
  Age: 81 Year
  Sex: Male

DRUGS (4)
  1. OCTREOTIDE. [Concomitant]
     Active Substance: OCTREOTIDE
     Indication: VIPOMA
     Dosage: 100 MCG, QD
     Route: 058
     Dates: start: 20061007
  2. PARACETAMOL [Concomitant]
     Active Substance: ACETAMINOPHEN
     Indication: PAIN
     Dosage: 1 G, QD
     Route: 048
  3. SIMVASTATIN. [Suspect]
     Active Substance: SIMVASTATIN
     Indication: PROPHYLAXIS
     Dosage: 40 MG, UNK (STARTED LONG TERM)
     Route: 048
     Dates: end: 20061119
  4. FLUCONAZOLE. [Suspect]
     Active Substance: FLUCONAZOLE
     Indication: OESOPHAGITIS
     Dosage: 50 MG, QD
     Route: 048
     Dates: start: 20061026, end: 20061120

REACTIONS (2)
  - Rhabdomyolysis [Not Recovered/Not Resolved]
  - Renal impairment [Not Recovered/Not Resolved]
